FAERS Safety Report 9015406 (Version 3)
Quarter: 2013Q3

REPORT INFORMATION
  Report Type: Report from Study
  Country: US (occurrence: US)
  Receive Date: 20130116
  Receipt Date: 20130709
  Transmission Date: 20140515
  Serious: Yes (Other)
  Sender: FDA-Public Use
  Company Number: US-BRISTOL-MYERS SQUIBB COMPANY-17267220

PATIENT
  Age: 40 Year
  Sex: Male
  Weight: 80.45 kg

DRUGS (1)
  1. IPILIMUMAB [Suspect]
     Indication: MALIGNANT MELANOMA
     Dosage: LAST DOSE ON 29SEP2011
     Route: 042
     Dates: start: 20110727

REACTIONS (3)
  - Bone pain [Recovered/Resolved]
  - Lipase increased [Recovered/Resolved]
  - Diarrhoea [Recovered/Resolved]
